FAERS Safety Report 5038844-8 (Version None)
Quarter: 2006Q2

REPORT INFORMATION
  Report Type: 
  Country: None (occurrence: None)
  Receive Date: 20060623
  Receipt Date: 20060608
  Transmission Date: 20061013
  Serious: Yes (Hospitalization)
  Sender: FDA-Public Use
  Company Number: DEU-2006-0002162

PATIENT
  Age: 46 Year
  Sex: Female
  Weight: 51 kg

DRUGS (10)
  1. OXYCODON 10MG / NALOXON 5MG(NALOXONE HYDROCHLORIDE, OXYCODONE HYDROCHL [Suspect]
     Indication: BACK PAIN
     Dosage: 10 MG, BID, ORAL
     Route: 048
     Dates: start: 20060321
  2. KATADOLON (FLUPIRTINE MALEATE) [Concomitant]
  3. NEURONTIN [Concomitant]
  4. ACTIVELLE [Concomitant]
  5. BELOC-ZOC MITE (METOPROLOL SUCCINATE) [Concomitant]
  6. EDRONAX (REBOXETINE) [Concomitant]
  7. NACOM (CARBIDOPA, LEVODOPA) [Concomitant]
  8. SULPIRIDE (SULPIRIDE) [Concomitant]
  9. COPAXONE [Concomitant]
  10. ALPRAZOLAM [Concomitant]

REACTIONS (6)
  - CONFUSIONAL STATE [None]
  - DRUG TOXICITY [None]
  - DYSSTASIA [None]
  - ENCEPHALOPATHY [None]
  - GAIT DISTURBANCE [None]
  - MUSCLE CONTRACTIONS INVOLUNTARY [None]
